FAERS Safety Report 11592262 (Version 1)
Quarter: 2015Q4

REPORT INFORMATION
  Report Type: Spontaneous
  Country: GB (occurrence: None)
  Receive Date: 20151001
  Receipt Date: 20151001
  Transmission Date: 20160304
  Serious: Yes (Life-Threatening)
  Sender: FDA-Public Use
  Company Number: 2015HINSPO0792

PATIENT
  Age: 87 Year
  Sex: Female
  Weight: 60 kg

DRUGS (8)
  1. COLECALCIFEROL  (VITAMIN D/VITAMIN D SUBSTANCES) [Concomitant]
  2. LOSARTAN. [Suspect]
     Active Substance: LOSARTAN
     Indication: PRODUCT USED FOR UNKNOWN INDICATION
     Route: 060
  3. SPIROLACTONE (SPIROLACTONE) [Suspect]
     Active Substance: SPIRONOLACTONE
     Indication: PRODUCT USED FOR UNKNOWN INDICATION
     Route: 048
  4. ATENOLOL (ATENOLOL) [Concomitant]
     Active Substance: ATENOLOL
  5. BUMETANIDE (BUMETANIDE) [Concomitant]
     Active Substance: BUMETANIDE
  6. IPRATROPIUM (IPRATROPIUM) [Concomitant]
  7. SALBUTAMOL (SALBUTAMOL) [Concomitant]
     Active Substance: ALBUTEROL
  8. WARFARIN (WARFARIN) [Concomitant]
     Active Substance: WARFARIN

REACTIONS (1)
  - Hyperkalaemia [None]
